FAERS Safety Report 25547574 (Version 1)
Quarter: 2025Q3

REPORT INFORMATION
  Report Type: Report from Study
  Country: CA (occurrence: CA)
  Receive Date: 20250714
  Receipt Date: 20250714
  Transmission Date: 20251021
  Serious: Yes (Hospitalization)
  Sender: ACCORD
  Company Number: None

PATIENT
  Sex: Female

DRUGS (2)
  1. MYCOPHENOLATE MOFETIL [Suspect]
     Active Substance: MYCOPHENOLATE MOFETIL
     Indication: Systemic scleroderma
  2. RITUXIMAB [Suspect]
     Active Substance: RITUXIMAB
     Indication: Systemic scleroderma

REACTIONS (7)
  - Systemic scleroderma [Unknown]
  - Drug ineffective [Unknown]
  - Lung disorder [Unknown]
  - Skin disorder [Unknown]
  - Dyspepsia [Unknown]
  - Dyspnoea [Unknown]
  - Off label use [Unknown]
